FAERS Safety Report 7841914-X (Version None)
Quarter: 2011Q4

REPORT INFORMATION
  Report Type: 
  Country: None (occurrence: None)
  Receive Date: 20111025
  Receipt Date: 20111020
  Transmission Date: 20120403
  Serious: No
  Sender: FDA-Public Use
  Company Number: PHEH2011US05118

PATIENT
  Sex: Male

DRUGS (2)
  1. ZOLOFT [Concomitant]
     Dosage: UNK UKN, UNK
  2. TASIGNA [Suspect]
     Indication: CHRONIC MYELOID LEUKAEMIA
     Dosage: 400 MG, BID
     Route: 048
     Dates: start: 20101103

REACTIONS (2)
  - FLUSHING [None]
  - HOT FLUSH [None]
